FAERS Safety Report 15395218 (Version 2)
Quarter: 2018Q4

REPORT INFORMATION
  Report Type: Spontaneous
  Country: US (occurrence: US)
  Receive Date: 20180918
  Receipt Date: 20181121
  Transmission Date: 20190204
  Serious: Yes (Death)
  Sender: FDA-Public Use
  Company Number: US-PFIZER INC-2018373214

PATIENT
  Age: 75 Year
  Sex: Male

DRUGS (2)
  1. PREDNISONE. [Suspect]
     Active Substance: PREDNISONE
     Indication: CONJUNCTIVAL DISORDER
     Dosage: LOW DOSE
  2. XELJANZ [Suspect]
     Active Substance: TOFACITINIB CITRATE
     Indication: CONJUNCTIVAL DISORDER
     Dosage: 5 MG, UNK

REACTIONS (2)
  - Drug ineffective for unapproved indication [Unknown]
  - Death [Fatal]
